FAERS Safety Report 18360076 (Version 1)
Quarter: 2020Q4

REPORT INFORMATION
  Report Type: Spontaneous
  Country: US (occurrence: US)
  Receive Date: 20201008
  Receipt Date: 20201008
  Transmission Date: 20210114
  Serious: No
  Sender: FDA-Public Use
  Company Number: None

PATIENT
  Age: 69 Year
  Sex: Female
  Weight: 55 kg

DRUGS (6)
  1. REMDESIVIR. [Suspect]
     Active Substance: REMDESIVIR
     Indication: COVID-19
     Dates: start: 20201003, end: 20201007
  2. ALPRAZOLAM 1 MG PO TID [Concomitant]
     Dates: start: 20201001, end: 20201008
  3. DEXAMETHASONE 6 MG PO DAILY [Concomitant]
     Dates: start: 20201004, end: 20201007
  4. TRAZODONE 50 MG PO QHS [Concomitant]
     Dates: start: 20201001, end: 20201008
  5. PERCOCET 5/325 MG PO Q4H [Concomitant]
     Dates: start: 20201001, end: 20201008
  6. OLANZAPINE 5 MG PO QHS [Concomitant]
     Dates: start: 20201001, end: 20201008

REACTIONS (2)
  - Delirium [None]
  - Mental status changes [None]

NARRATIVE: CASE EVENT DATE: 20201007
